FAERS Safety Report 25137371 (Version 2)
Quarter: 2025Q2

REPORT INFORMATION
  Report Type: Spontaneous
  Country: US (occurrence: US)
  Receive Date: 20250329
  Receipt Date: 20250402
  Transmission Date: 20250717
  Serious: No
  Sender: ABBVIE
  Company Number: US-ABBVIE-6189601

PATIENT
  Age: 88 Year
  Sex: Female
  Weight: 54 kg

DRUGS (5)
  1. REFRESH TEARS PF [Suspect]
     Active Substance: CARBOXYMETHYLCELLULOSE SODIUM\GLYCERIN
     Indication: Dry eye
     Route: 047
     Dates: end: 20250316
  2. RESTASIS [Suspect]
     Active Substance: CYCLOSPORINE
     Indication: Dry eye
     Route: 047
     Dates: start: 2023
  3. DILTIAZEM [Concomitant]
     Active Substance: DILTIAZEM
     Indication: Hypertension
  4. REFRESH CLASSIC [Suspect]
     Active Substance: POLYVINYL ALCOHOL\POVIDONE
     Indication: Dry eye
     Route: 047
     Dates: end: 20250316
  5. REFRESH OPTIVE MEGA-3 [Suspect]
     Active Substance: CARBOXYMETHYLCELLULOSE SODIUM\GLYCERIN\POLYSORBATE 80
     Indication: Dry eye
     Route: 047
     Dates: start: 20241217, end: 20250317

REACTIONS (12)
  - Nasopharyngitis [Recovered/Resolved]
  - Eye pruritus [Recovered/Resolved]
  - Lacrimation increased [Recovered/Resolved]
  - Sinusitis [Recovered/Resolved]
  - Eye irritation [Unknown]
  - Eye irritation [Recovered/Resolved]
  - Photophobia [Recovered/Resolved]
  - Vision blurred [Recovered/Resolved]
  - Eyelid margin crusting [Recovered/Resolved]
  - Eye disorder [Unknown]
  - Foreign body sensation in eyes [Recovered/Resolved]
  - Allergic reaction to excipient [Unknown]

NARRATIVE: CASE EVENT DATE: 20250201
